FAERS Safety Report 17892684 (Version 1)
Quarter: 2020Q2

REPORT INFORMATION
  Report Type: Report from Study
  Country: None (occurrence: CA)
  Receive Date: 20200612
  Receipt Date: 20200612
  Transmission Date: 20200714
  Serious: Yes (Other)
  Sender: FDA-Public Use
  Company Number: CA-ABBVIE-19K-028-2636655-00

PATIENT
  Sex: Male

DRUGS (2)
  1. HUMIRA [Suspect]
     Active Substance: ADALIMUMAB
     Route: 058
     Dates: start: 201901
  2. HUMIRA [Suspect]
     Active Substance: ADALIMUMAB
     Indication: CROHN^S DISEASE
     Route: 058
     Dates: start: 20090304, end: 201901

REACTIONS (12)
  - Procedural pain [Not Recovered/Not Resolved]
  - Drug ineffective [Not Recovered/Not Resolved]
  - Pain [Recovering/Resolving]
  - Loss of consciousness [Recovering/Resolving]
  - Intestinal operation [Unknown]
  - Productive cough [Recovering/Resolving]
  - Abdominal distension [Recovering/Resolving]
  - Influenza [Recovering/Resolving]
  - Dizziness [Recovering/Resolving]
  - Obstruction [Not Recovered/Not Resolved]
  - Imaging procedure abnormal [Not Recovered/Not Resolved]
  - Dysstasia [Unknown]

NARRATIVE: CASE EVENT DATE: 2017
